FAERS Safety Report 6088755-4 (Version None)
Quarter: 2009Q1

REPORT INFORMATION
  Report Type: 
  Country: None (occurrence: None)
  Receive Date: 20090219
  Receipt Date: 20090205
  Transmission Date: 20090719
  Serious: Yes (Hospitalization)
  Sender: FDA-Public Use
  Company Number: 2008S1000453

PATIENT
  Age: 18 Year
  Sex: Male

DRUGS (5)
  1. CUBICIN [Suspect]
     Indication: LUNG ABSCESS
     Dosage: 400 MG; Q24H; IV
     Route: 042
     Dates: start: 20080818, end: 20080917
  2. CUBICIN [Suspect]
     Indication: WOUND
     Dosage: 400 MG; Q24H; IV
     Route: 042
     Dates: start: 20080818, end: 20080917
  3. TEICOPLANIN [Concomitant]
  4. CIPROFLOXACIN [Concomitant]
  5. ERTAPENEM [Concomitant]

REACTIONS (5)
  - ALANINE AMINOTRANSFERASE INCREASED [None]
  - ASPARTATE AMINOTRANSFERASE INCREASED [None]
  - ENTEROBACTER INFECTION [None]
  - SERRATIA INFECTION [None]
  - SUPERINFECTION BACTERIAL [None]
